FAERS Safety Report 5077581-0 (Version None)
Quarter: 2006Q3

REPORT INFORMATION
  Report Type: 
  Country: None (occurrence: None)
  Receive Date: 20060810
  Receipt Date: 20060329
  Transmission Date: 20061208
  Serious: No
  Sender: FDA-Public Use
  Company Number: US-GLAXOSMITHKLINE-A0601448A

PATIENT
  Sex: Male

DRUGS (2)
  1. PAROXETINE HCL [Suspect]
     Indication: DRUG USE FOR UNKNOWN INDICATION
     Dosage: 20MG UNKNOWN
     Route: 048
     Dates: start: 20040101, end: 20040101
  2. TRAZODONE HCL [Concomitant]

REACTIONS (5)
  - ANXIETY [None]
  - COLD SWEAT [None]
  - MIDDLE INSOMNIA [None]
  - NAUSEA [None]
  - THINKING ABNORMAL [None]
